FAERS Safety Report 18783238 (Version 1)
Quarter: 2021Q1

REPORT INFORMATION
  Report Type: Report from Study
  Country: AU (occurrence: AU)
  Receive Date: 20210125
  Receipt Date: 20210125
  Transmission Date: 20210419
  Serious: No
  Sender: FDA-Public Use
  Company Number: AU-TOLMAR, INC.-21AU024964

PATIENT
  Sex: Male

DRUGS (2)
  1. ELIGARD [Suspect]
     Active Substance: LEUPROLIDE ACETATE
     Indication: PROSTATE CANCER
     Dosage: 7.5 MG, Q 1 MONTH
     Route: 065
     Dates: start: 20201211
  2. TARGIN [Suspect]
     Active Substance: NALOXONE HYDROCHLORIDE\OXYCODONE HYDROCHLORIDE
     Indication: BACK PAIN
     Route: 065

REACTIONS (2)
  - Malaise [Not Recovered/Not Resolved]
  - Back pain [Not Recovered/Not Resolved]
